FAERS Safety Report 17224659 (Version 1)
Quarter: 2020Q1

REPORT INFORMATION
  Report Type: Spontaneous
  Country: US (occurrence: US)
  Receive Date: 20200102
  Receipt Date: 20200102
  Transmission Date: 20200409
  Serious: No
  Sender: FDA-Public Use
  Company Number: US-BAYER-2019-238127

PATIENT
  Age: 76 Year
  Sex: Female

DRUGS (3)
  1. NEXAVAR [Suspect]
     Active Substance: SORAFENIB
     Indication: ANGIOSARCOMA
     Dosage: 200 MG, QD
     Dates: start: 20191217
  2. NEXAVAR [Suspect]
     Active Substance: SORAFENIB
     Indication: SKIN LESION
  3. NEXAVAR [Suspect]
     Active Substance: SORAFENIB
     Indication: HEPATIC LESION

REACTIONS (7)
  - Rash [Not Recovered/Not Resolved]
  - Pain in extremity [Not Recovered/Not Resolved]
  - Plantar erythema [Not Recovered/Not Resolved]
  - Palmar-plantar erythrodysaesthesia syndrome [Not Recovered/Not Resolved]
  - Off label use [None]
  - Product use in unapproved indication [None]
  - Erythema [Not Recovered/Not Resolved]

NARRATIVE: CASE EVENT DATE: 201912
